FAERS Safety Report 7035318-X (Version None)
Quarter: 2010Q4

REPORT INFORMATION
  Report Type: 
  Country: None (occurrence: None)
  Receive Date: 20101008
  Receipt Date: 20100930
  Transmission Date: 20110411
  Serious: Yes (Other)
  Sender: FDA-Public Use
  Company Number: B0677626A

PATIENT
  Sex: Female

DRUGS (4)
  1. PAXIL [Suspect]
     Indication: PRODUCT USED FOR UNKNOWN INDICATION
     Dosage: 20MG PER DAY
     Route: 048
  2. PAXIL [Suspect]
     Dosage: 10MG PER DAY
     Route: 048
  3. PAXIL [Suspect]
     Dosage: 5MG PER DAY
     Route: 048
  4. PAXIL [Suspect]
     Dosage: 5MG TWICE PER DAY
     Route: 048
     Dates: start: 20100701

REACTIONS (4)
  - BALANCE DISORDER [None]
  - DIZZINESS [None]
  - DRUG WITHDRAWAL SYNDROME [None]
  - LIVER FUNCTION TEST ABNORMAL [None]
